FAERS Safety Report 8866444 (Version 2)
Quarter: 2012Q4

REPORT INFORMATION
  Report Type: 
  Country: JP (occurrence: JP)
  Receive Date: 20121025
  Receipt Date: 20121128
  Transmission Date: 20130627
  Serious: Yes (Other)
  Sender: FDA-Public Use
  Company Number: JP-BAYER-2012-109024

PATIENT
  Age: 82 Year
  Sex: Male

DRUGS (2)
  1. BAYASPIRIN [Suspect]
     Indication: ANGINA PECTORIS
     Route: 048
  2. PLETAAL [Suspect]
     Indication: ANGINA PECTORIS
     Route: 048

REACTIONS (3)
  - Dieulafoy^s vascular malformation [None]
  - Haematemesis [None]
  - Melaena [None]
